FAERS Safety Report 20030361 (Version 2)
Quarter: 2022Q1

REPORT INFORMATION
  Report Type: Spontaneous
  Country: US (occurrence: US)
  Receive Date: 20211103
  Receipt Date: 20220107
  Transmission Date: 20220423
  Serious: Yes (Hospitalization)
  Sender: FDA-Public Use
  Company Number: US-ELI_LILLY_AND_COMPANY-US202110009785

PATIENT
  Sex: Male

DRUGS (2)
  1. HUMALOG [Suspect]
     Active Substance: INSULIN LISPRO
     Indication: Type 1 diabetes mellitus
     Dosage: 25 U, UNKNOWN
     Route: 058
     Dates: start: 2009
  2. HUMALOG [Suspect]
     Active Substance: INSULIN LISPRO
     Dosage: UNK U, UNKNOWN
     Route: 065

REACTIONS (3)
  - Diabetic ketoacidosis [Recovering/Resolving]
  - Retinopathy [Unknown]
  - Incorrect dose administered [Not Recovered/Not Resolved]
